FAERS Safety Report 16684824 (Version 1)
Quarter: 2019Q3

REPORT INFORMATION
  Report Type: Spontaneous
  Country: IN (occurrence: IN)
  Receive Date: 20190808
  Receipt Date: 20190808
  Transmission Date: 20191004
  Serious: Yes (Life-Threatening, Other)
  Sender: FDA-Public Use
  Company Number: IN-ASSERTIO THERAPEUTICS, INC.-IN-2019DEP000821

PATIENT
  Age: 64 Year
  Sex: Female

DRUGS (1)
  1. DICLOFENAC POTASSIUM. [Suspect]
     Active Substance: DICLOFENAC POTASSIUM
     Indication: PAIN
     Dosage: UNK
     Route: 062

REACTIONS (3)
  - Altered state of consciousness [Recovering/Resolving]
  - Agitation [Recovering/Resolving]
  - Coma scale abnormal [Recovering/Resolving]
